FAERS Safety Report 13259665 (Version 1)
Quarter: 2017Q1

REPORT INFORMATION
  Report Type: Spontaneous
  Country: US (occurrence: US)
  Receive Date: 20170222
  Receipt Date: 20170222
  Transmission Date: 20170428
  Serious: No
  Sender: FDA-Public Use
  Company Number: US-B.I. PHARMACEUTICALS,INC./RIDGEFIELD-2017-BI-009068

PATIENT
  Age: 82 Year
  Sex: Female

DRUGS (6)
  1. BENAZEPRIL [Concomitant]
     Active Substance: BENAZEPRIL HYDROCHLORIDE
     Indication: HYPERTENSION
     Dosage: ONE TABLET ONCE A DAY;  FORM STRENGTH: 10 MG; FORMULATION: TABLET
     Route: 048
  2. DIGOXIN. [Concomitant]
     Active Substance: DIGOXIN
     Indication: ATRIAL FIBRILLATION
     Dosage: ONE TABLET ONCE A DAY;  FORM STRENGTH: 1.25 MG; FORMULATION: TABLET
     Route: 048
  3. SPIRIVA [Suspect]
     Active Substance: TIOTROPIUM BROMIDE MONOHYDRATE
     Indication: CHRONIC OBSTRUCTIVE PULMONARY DISEASE
     Dosage: TWO PUFFS ONCE A DAY;  FORM STRENGTH: 2.5 MCG; FORMULATION: INHALATION SPRAY? ADMINISTRATION CORRECT
     Route: 055
     Dates: start: 2016, end: 201701
  4. SPIRIVA [Suspect]
     Active Substance: TIOTROPIUM BROMIDE MONOHYDRATE
     Indication: EMPHYSEMA
  5. DELARESP [Concomitant]
     Indication: CHRONIC OBSTRUCTIVE PULMONARY DISEASE
     Dosage: ONE TABLET ONCE;  FORM STRENGTH: 500 MG; FORMULATION: TABLET
  6. XEROLTO [Concomitant]
     Indication: PULMONARY EMBOLISM
     Dosage: ONE TABLET DAILY;  FORM STRENGTH: 20 MG; FORMULATION: TABLET
     Route: 048

REACTIONS (2)
  - Eye pain [Not Recovered/Not Resolved]
  - Hypoacusis [Unknown]

NARRATIVE: CASE EVENT DATE: 201610
